FAERS Safety Report 23577072 (Version 1)
Quarter: 2024Q1

REPORT INFORMATION
  Report Type: Spontaneous
  Country: US (occurrence: US)
  Receive Date: 20240228
  Receipt Date: 20240228
  Transmission Date: 20240410
  Serious: No
  Sender: FDA-Public Use
  Company Number: US-TEVA-VS-3158358

PATIENT
  Age: 83 Year
  Sex: Male
  Weight: 74.84 kg

DRUGS (2)
  1. QVAR REDIHALER [Suspect]
     Active Substance: BECLOMETHASONE DIPROPIONATE
     Indication: Asthma
     Dosage: 80 MCG TAKE 2 PUFFS TWICE A DAY
     Route: 065
     Dates: start: 2024
  2. QVAR REDIHALER [Suspect]
     Active Substance: BECLOMETHASONE DIPROPIONATE
     Dosage: 80 MCG TAKE 1 PUFFS TWICE A DAY
     Route: 065
     Dates: start: 2024

REACTIONS (5)
  - Visual impairment [Unknown]
  - Intentional product misuse [Unknown]
  - Paranasal sinus discomfort [Unknown]
  - Productive cough [Recovering/Resolving]
  - Cough [Unknown]

NARRATIVE: CASE EVENT DATE: 20240101
